FAERS Safety Report 23678462 (Version 1)
Quarter: 2024Q1

REPORT INFORMATION
  Report Type: Spontaneous
  Country: CN (occurrence: CN)
  Receive Date: 20240327
  Receipt Date: 20240327
  Transmission Date: 20240409
  Serious: Yes (Life-Threatening)
  Sender: FDA-Public Use
  Company Number: CN-BAYER-2024A045479

PATIENT
  Age: 67 Year
  Sex: Male

DRUGS (1)
  1. ULTRAVIST [Suspect]
     Active Substance: IOPROMIDE
     Indication: Angiogram
     Dosage: 100 ML, ONCE
     Route: 042
     Dates: start: 20240320, end: 20240320

REACTIONS (6)
  - Speech disorder [Recovering/Resolving]
  - Contrast media allergy [Recovering/Resolving]
  - Pallor [Recovering/Resolving]
  - Urticaria [Recovering/Resolving]
  - Blood pressure decreased [Recovered/Resolved]
  - Dyspnoea [Recovering/Resolving]

NARRATIVE: CASE EVENT DATE: 20240320
